FAERS Safety Report 8424221-6 (Version None)
Quarter: 2012Q2

REPORT INFORMATION
  Report Type: 
  Country: None (occurrence: None)
  Receive Date: 20120608
  Receipt Date: 20120313
  Transmission Date: 20120825
  Serious: No
  Sender: FDA-Public Use
  Company Number: US-ASTRAZENECA-2012SE17539

PATIENT
  Age: 37 Year
  Sex: Female

DRUGS (17)
  1. ORTHO-NOVUM [Concomitant]
  2. GLIPIZIDE [Concomitant]
  3. COMPAZINE [Concomitant]
     Indication: NAUSEA
  4. METFORMIN HCL [Concomitant]
  5. CELEXA [Concomitant]
  6. FENOFIBRATE MICRONIZ [Concomitant]
  7. BUDESONIDE [Suspect]
     Indication: WHEEZING
     Route: 055
  8. SEROQUEL [Suspect]
     Dosage: 1 TO 2 TABLET AT BED TIME
     Route: 048
  9. PROTONIX [Concomitant]
  10. ZYRTEC [Concomitant]
     Indication: HYPERSENSITIVITY
  11. TRAZODONE HCL [Concomitant]
  12. PERFOROMIAT [Concomitant]
  13. LEVOTHYROXINE SODIUM [Concomitant]
  14. SINGULAIR [Concomitant]
  15. VONTOLIN HFA [Concomitant]
  16. IMITREX [Concomitant]
     Indication: HEADACHE
  17. CLONAZEPAM [Concomitant]

REACTIONS (1)
  - NAUSEA [None]
